FAERS Safety Report 4344456-1 (Version None)
Quarter: 2004Q2

REPORT INFORMATION
  Report Type: 
  Country: None (occurrence: None)
  Receive Date: 20040422
  Receipt Date: 20040414
  Transmission Date: 20050107
  Serious: Yes (Death, Other)
  Sender: FDA-Public Use
  Company Number: PHBS2004US05125

PATIENT
  Age: 59 Year
  Sex: Male

DRUGS (4)
  1. CYCLOSPORINE [Suspect]
     Indication: RENAL TRANSPLANT
     Route: 065
  2. ORTHOCLONE OKT3 [Suspect]
     Indication: RENAL TRANSPLANT
     Route: 065
  3. AZATHIOPRINE [Suspect]
     Indication: RENAL TRANSPLANT
     Route: 065
  4. PREDNISONE [Suspect]
     Indication: RENAL TRANSPLANT
     Route: 065

REACTIONS (5)
  - EPSTEIN-BARR VIRUS ANTIGEN POSITIVE [None]
  - GOUT [None]
  - HYPERTENSION [None]
  - KIDNEY TRANSPLANT REJECTION [None]
  - LYMPHOPROLIFERATIVE DISORDER [None]
